FAERS Safety Report 8294035-9 (Version None)
Quarter: 2012Q2

REPORT INFORMATION
  Report Type: 
  Country: None (occurrence: None)
  Receive Date: 20120418
  Receipt Date: 20120411
  Transmission Date: 20120825
  Serious: Yes (Other)
  Sender: FDA-Public Use
  Company Number: US-PFIZER INC-2012091359

PATIENT
  Sex: Female

DRUGS (1)
  1. NEURONTIN [Suspect]
     Indication: GASTRIC DISORDER
     Dosage: 600 MG, 4X/DAY

REACTIONS (3)
  - ROAD TRAFFIC ACCIDENT [None]
  - DEPRESSION [None]
  - POST-TRAUMATIC STRESS DISORDER [None]
